FAERS Safety Report 4359816-2 (Version None)
Quarter: 2004Q2

REPORT INFORMATION
  Report Type: 
  Country: None (occurrence: None)
  Receive Date: 20040514
  Receipt Date: 20040503
  Transmission Date: 20050107
  Serious: Yes (Other)
  Sender: FDA-Public Use
  Company Number: BR-JNJFOC-20040501361

PATIENT
  Age: 65 Year
  Sex: Female
  Weight: 64 kg

DRUGS (3)
  1. LEVOFLOXACIN [Suspect]
     Indication: ADENOVIRAL UPPER RESPIRATORY INFECTION
     Dosage: 500 MG, 1 IN 1 DAY, ORAL
     Route: 048
     Dates: start: 20040313, end: 20040316
  2. ZOCOR [Concomitant]
  3. DIOVAN (VALSARATAN) [Concomitant]

REACTIONS (1)
  - DIPLOPIA [None]
